FAERS Safety Report 13802075 (Version 1)
Quarter: 2017Q3

REPORT INFORMATION
  Report Type: Other
  Country: GB (occurrence: GB)
  Receive Date: 20170727
  Receipt Date: 20170727
  Transmission Date: 20171127
  Serious: Yes (Disabling)
  Sender: FDA-Public Use
  Company Number: GB-ALSI-201700225

PATIENT
  Age: 41 Year
  Sex: Female

DRUGS (1)
  1. NITROUS OXIDE MEDICINAL [Suspect]
     Active Substance: NITROUS OXIDE
     Indication: GENERAL ANAESTHESIA
     Route: 055

REACTIONS (2)
  - Subacute combined cord degeneration [Recovered/Resolved]
  - Anaemia megaloblastic [Recovered/Resolved]
